FAERS Safety Report 7148999-7 (Version None)
Quarter: 2010Q4

REPORT INFORMATION
  Report Type: 
  Country: None (occurrence: None)
  Receive Date: 20101209
  Receipt Date: 20101129
  Transmission Date: 20110411
  Serious: Yes (Death, Hospitalization)
  Sender: FDA-Public Use
  Company Number: US-ELI_LILLY_AND_COMPANY-US201007007108

PATIENT
  Sex: Male
  Weight: 77.279 kg

DRUGS (12)
  1. PEMETREXED [Suspect]
     Indication: NON-SMALL CELL LUNG CANCER
     Dosage: 500 MG/M2, OTHER
     Route: 042
     Dates: start: 20100721
  2. CARBOPLATIN [Suspect]
     Indication: NON-SMALL CELL LUNG CANCER
     Dosage: 6 D/F, OTHER
     Route: 042
     Dates: start: 20100721
  3. FOLIC ACID [Concomitant]
     Indication: PREMEDICATION
     Dates: start: 20100714
  4. VITAMIN B-12 [Concomitant]
     Indication: PREMEDICATION
     Dates: start: 20100714
  5. DOCUSATE SODIUM [Concomitant]
     Indication: CONSTIPATION
     Dates: start: 20100401
  6. OMEPRAZOLE [Concomitant]
     Indication: GASTROOESOPHAGEAL REFLUX DISEASE
     Dates: start: 20100401
  7. OXYCODONE HCL [Concomitant]
     Indication: PAIN
  8. DEXAMETHASONE [Concomitant]
     Indication: PREMEDICATION
     Dates: start: 20100721, end: 20100724
  9. MORPHINE SULFATE [Concomitant]
     Indication: PAIN
     Dates: start: 20100608
  10. ZOLPIDEM TARTRATE [Concomitant]
     Indication: INSOMNIA
     Dates: start: 20100608
  11. LACTULOSE [Concomitant]
     Indication: CONSTIPATION
     Dates: start: 20100501
  12. DULCOLAX [Concomitant]
     Indication: CONSTIPATION
     Dates: start: 20100601

REACTIONS (3)
  - DEATH [None]
  - DEEP VEIN THROMBOSIS [None]
  - PULMONARY EMBOLISM [None]
